FAERS Safety Report 4352295-0 (Version None)
Quarter: 2004Q2

REPORT INFORMATION
  Report Type: 
  Country: None (occurrence: None)
  Receive Date: 20040430
  Receipt Date: 20040224
  Transmission Date: 20050107
  Serious: Yes (Other)
  Sender: FDA-Public Use
  Company Number: 23179(0)

PATIENT
  Age: 33 Year
  Sex: Male

DRUGS (3)
  1. ALDARA [Suspect]
     Indication: CONDYLOMA ACUMINATUM
     Dosage: (UNKNOWN, 3 IN 1 WEEK(S)), TOPICAL
     Route: 061
     Dates: start: 20040211
  2. UNSPECIFIED TOPICAL ACNE MEDICATION [Suspect]
  3. WELLBUTRIN [Concomitant]

REACTIONS (2)
  - FACE OEDEMA [None]
  - INFLUENZA LIKE ILLNESS [None]
